FAERS Safety Report 26103843 (Version 4)
Quarter: 2025Q4

REPORT INFORMATION
  Report Type: Spontaneous
  Country: EU (occurrence: EU)
  Receive Date: 20251129
  Receipt Date: 20251231
  Transmission Date: 20260118
  Serious: Yes (Other)
  Sender: CELLTRION
  Company Number: EU-SUN PHARMACEUTICAL INDUSTRIES LTD-2025R1-536815

PATIENT

DRUGS (20)
  1. TRASTUZUMAB [Suspect]
     Active Substance: TRASTUZUMAB
     Indication: Hormone receptor positive HER2 positive breast cancer
     Dosage: MARCH 2019 LYMPH NODE AND CUTANEOUS METASTASES REVEALED:  TREATMENT UNTIL NOVEMBER 2020, WHEN FURTHE
     Route: 065
     Dates: start: 201903, end: 202011
  2. TRASTUZUMAB [Suspect]
     Active Substance: TRASTUZUMAB
     Indication: Invasive ductal breast carcinoma
     Dosage: MARCH 2019 LYMPH NODE AND CUTANEOUS METASTASES REVEALED:  TREATMENT UNTIL NOVEMBER 2020, WHEN FURTHE
     Route: 065
     Dates: start: 202301
  3. TRASTUZUMAB [Suspect]
     Active Substance: TRASTUZUMAB
     Indication: Breast mass
     Dosage: MARCH 2019 LYMPH NODE AND CUTANEOUS METASTASES REVEALED:  TREATMENT UNTIL NOVEMBER 2020, WHEN FURTHE
     Route: 065
     Dates: start: 202411
  4. TRASTUZUMAB [Suspect]
     Active Substance: TRASTUZUMAB
     Indication: Metastases to lymph nodes
     Dosage: UNK
     Route: 065
     Dates: start: 202011
  5. TRASTUZUMAB [Suspect]
     Active Substance: TRASTUZUMAB
     Indication: Metastases to skin
  6. TRASTUZUMAB [Suspect]
     Active Substance: TRASTUZUMAB
     Indication: Breast cancer metastatic
  7. TRASTUZUMAB [Suspect]
     Active Substance: TRASTUZUMAB
     Indication: HER2 positive breast cancer
     Dosage: UNK
     Route: 065
     Dates: start: 2016
  8. ADO-TRASTUZUMAB EMTANSINE [Suspect]
     Active Substance: ADO-TRASTUZUMAB EMTANSINE
     Indication: HER2 positive breast cancer
     Dosage: TRASTUZUMAB  EMTANSINE WAS THEN ADMINISTERED UNTIL JANUARY 2023, RESULTING IN A GOOD ONCOLOGIC RESPO
     Dates: start: 202301, end: 202301
  9. ADO-TRASTUZUMAB EMTANSINE [Suspect]
     Active Substance: ADO-TRASTUZUMAB EMTANSINE
     Indication: Thrombocytopenia
  10. ADO-TRASTUZUMAB EMTANSINE [Suspect]
     Active Substance: ADO-TRASTUZUMAB EMTANSINE
     Indication: Lymphocytic infiltration
  11. TRASTUZUMAB DERUXTECAN [Suspect]
     Active Substance: TRASTUZUMAB DERUXTECAN
     Indication: Breast cancer metastatic
     Dates: start: 202505
  12. PERTUZUMAB [Suspect]
     Active Substance: PERTUZUMAB
     Indication: HER2 positive breast cancer
     Dosage: TREATMENT WITH TRASTUZUMAB AND PERTUZUMAB WAS  INITIATED UNTIL NOVEMBER 2020
     Route: 065
     Dates: start: 201903, end: 202011
  13. PERTUZUMAB [Suspect]
     Active Substance: PERTUZUMAB
     Dosage: UNK
     Dates: start: 202011
  14. FULVESTRANT [Suspect]
     Active Substance: FULVESTRANT
     Indication: Hormone receptor positive HER2 positive breast cancer
     Dosage: UNK
     Route: 065
  15. CAPECITABINE [Suspect]
     Active Substance: CAPECITABINE
     Indication: Skin lesion
     Dosage: UNK
     Route: 048
     Dates: start: 202411
  16. CAPECITABINE [Suspect]
     Active Substance: CAPECITABINE
     Indication: Breast mass
  17. CAPECITABINE [Concomitant]
     Active Substance: CAPECITABINE
     Indication: Skin lesion
     Dosage: UNK
     Dates: start: 202411
  18. DOCETAXEL [Concomitant]
     Active Substance: DOCETAXEL
  19. LETROZOLE [Concomitant]
     Active Substance: LETROZOLE
  20. FULVESTRANT [Concomitant]
     Active Substance: FULVESTRANT
     Indication: Hormone receptor positive HER2 positive breast cancer
     Route: 065

REACTIONS (17)
  - Metastases to skin [Unknown]
  - Breast cancer metastatic [Unknown]
  - Portal vein thrombosis [Recovered/Resolved]
  - Portal hypertension [Unknown]
  - Metastases to lymph nodes [Unknown]
  - Metastases to breast [Unknown]
  - Breast cancer [Unknown]
  - Pneumonitis [Unknown]
  - Thrombocytopenia [Unknown]
  - Drug ineffective [Unknown]
  - Skin lesion [Recovered/Resolved]
  - Lymphatic disorder [Unknown]
  - Nausea [Unknown]
  - Fatigue [Unknown]
  - Product use issue [Unknown]
  - Off label use [Unknown]
  - Therapy partial responder [Unknown]

NARRATIVE: CASE EVENT DATE: 20241101
